FAERS Safety Report 25594444 (Version 1)
Quarter: 2025Q3

REPORT INFORMATION
  Report Type: Spontaneous
  Country: GB (occurrence: GB)
  Receive Date: 20250723
  Receipt Date: 20250723
  Transmission Date: 20251021
  Serious: Yes (Other)
  Sender: CELLTRION
  Company Number: None

PATIENT

DRUGS (4)
  1. YUFLYMA [Suspect]
     Active Substance: ADALIMUMAB-AATY
     Indication: Ankylosing spondylitis
     Dates: start: 20250703
  2. YUFLYMA [Suspect]
     Active Substance: ADALIMUMAB-AATY
     Dates: start: 20250704
  3. ACETAMINOPHEN [Concomitant]
     Active Substance: ACETAMINOPHEN
     Indication: Adverse drug reaction
  4. IBUPROFEN [Concomitant]
     Active Substance: IBUPROFEN
     Indication: Adverse drug reaction

REACTIONS (7)
  - Speech disorder developmental [Recovered/Resolved]
  - Medication error [Unknown]
  - Vision blurred [Unknown]
  - Head discomfort [Unknown]
  - Affect lability [Unknown]
  - Headache [Unknown]
  - Intentional product use issue [Unknown]

NARRATIVE: CASE EVENT DATE: 20250704
